FAERS Safety Report 10283097 (Version 2)
Quarter: 2014Q3

REPORT INFORMATION
  Report Type: Spontaneous
  Country: DK (occurrence: DK)
  Receive Date: 20140708
  Receipt Date: 20140711
  Transmission Date: 20150326
  Serious: Yes (Death, Hospitalization)
  Sender: FDA-Public Use
  Company Number: DK-AMGEN INC.-DNKSP2014050273

PATIENT
  Age: 42 Year
  Sex: Male

DRUGS (4)
  1. CISPLATIN. [Concomitant]
     Active Substance: CISPLATIN
     Dosage: 20 MG/M2, SID ON DAY 1-5
  2. ETOPOSIDE. [Concomitant]
     Active Substance: ETOPOSIDE
     Dosage: 100 MG/M2, SID ON DAY 1-5
  3. BLEOMYCIN [Suspect]
     Active Substance: BLEOMYCIN SULFATE
     Indication: TESTIS CANCER
     Dosage: 30000 IU, ON DAY 2, 9 AND 16
     Route: 065
  4. PEGFILGRASTIM [Suspect]
     Active Substance: PEGFILGRASTIM
     Indication: FEBRILE NEUTROPENIA
     Dosage: UNK
     Route: 065

REACTIONS (5)
  - Pneumonitis [Fatal]
  - Lung infection [Unknown]
  - Bronchiectasis [Unknown]
  - Interstitial lung disease [Unknown]
  - Hypoxia [Unknown]
